FAERS Safety Report 23827435 (Version 1)
Quarter: 2024Q2

REPORT INFORMATION
  Report Type: Spontaneous
  Country: US (occurrence: US)
  Receive Date: 20240507
  Receipt Date: 20240507
  Transmission Date: 20240716
  Serious: Yes (Other)
  Sender: FDA-Public Use
  Company Number: US-Breckenridge Pharmaceutical, Inc.-2156662

PATIENT
  Age: 76 Year
  Sex: Female
  Weight: 59.091 kg

DRUGS (1)
  1. DULOXETINE HYDROCHLORIDE [Suspect]
     Active Substance: DULOXETINE HYDROCHLORIDE
     Indication: Depression
     Route: 048

REACTIONS (9)
  - Abdominal discomfort [Unknown]
  - Blood pressure decreased [Unknown]
  - Laboratory test abnormal [Unknown]
  - Therapeutic product effect incomplete [Unknown]
  - Abnormal loss of weight [Unknown]
  - Dizziness [Unknown]
  - Fatigue [Unknown]
  - Diarrhoea [Unknown]
  - Flatulence [Unknown]
